FAERS Safety Report 8534034-2 (Version None)
Quarter: 2012Q3

REPORT INFORMATION
  Report Type: 
  Country: None (occurrence: None)
  Receive Date: 20120724
  Receipt Date: 20120716
  Transmission Date: 20120928
  Serious: Yes (Life-Threatening, Hospitalization, Other)
  Sender: FDA-Public Use
  Company Number: US-ROCHE-667274

PATIENT
  Sex: Male
  Weight: 76.9 kg

DRUGS (4)
  1. DEXAMETHASONE [Suspect]
     Indication: PRODUCT USED FOR UNKNOWN INDICATION
  2. DOCETAXEL [Suspect]
     Indication: NON-SMALL CELL LUNG CANCER
     Dosage: 75 MG/ML, Q3W LAST DOSE PRIOR TO SAE: 18/8/2009
     Route: 042
  3. AVASTIN [Suspect]
     Indication: NON-SMALL CELL LUNG CANCER
     Dosage: 15 MG/KG, Q3W OVER 30-90 MIN ON DAY 1, LAST DOSE PRIOR TO SAE: 18/8/2009
     Route: 042
  4. CISPLATIN [Suspect]
     Indication: NON-SMALL CELL LUNG CANCER
     Dosage: 75 MG/M2, Q3WV LAST DOSE PRIOR TO SAE: 18/8/2009
     Route: 042

REACTIONS (5)
  - HYPOGLYCAEMIA [None]
  - DEVICE RELATED INFECTION [None]
  - ENDOCARDITIS [None]
  - HYPERGLYCAEMIA [None]
  - URINARY TRACT INFECTION [None]
